FAERS Safety Report 21323886 (Version 7)
Quarter: 2023Q4

REPORT INFORMATION
  Report Type: Spontaneous
  Country: CA (occurrence: CA)
  Receive Date: 20220912
  Receipt Date: 20231221
  Transmission Date: 20240110
  Serious: Yes (Hospitalization, Other)
  Sender: FDA-Public Use
  Company Number: CA-PFIZER INC-202201026071

PATIENT
  Age: 73 Year
  Sex: Female
  Weight: 90.9 kg

DRUGS (5)
  1. RUXIENCE [Suspect]
     Active Substance: RITUXIMAB-PVVR
     Indication: Dermatomyositis
     Dosage: 1000 MG, DAY 1 AND 15
     Route: 042
     Dates: start: 20220818, end: 2022
  2. RUXIENCE [Suspect]
     Active Substance: RITUXIMAB-PVVR
     Dosage: 1000 MG, DAY 1 AND 15
     Route: 042
     Dates: start: 20220818
  3. RUXIENCE [Suspect]
     Active Substance: RITUXIMAB-PVVR
     Dosage: 1000 MG, DAY 1 AND 15
     Route: 042
     Dates: start: 20230719
  4. RUXIENCE [Suspect]
     Active Substance: RITUXIMAB-PVVR
     Dosage: 1000 MG, DAY 1 AND 15
     Route: 042
     Dates: start: 20230808
  5. PREDNISONE [Concomitant]
     Active Substance: PREDNISONE
     Dosage: UNK (TRYING TO TAPER OFF)

REACTIONS (5)
  - Ankle operation [Recovering/Resolving]
  - Type 2 diabetes mellitus [Unknown]
  - Off label use [Unknown]
  - Drug effective for unapproved indication [Unknown]
  - Inappropriate schedule of product administration [Unknown]

NARRATIVE: CASE EVENT DATE: 20220101
